FAERS Safety Report 4681646-2 (Version None)
Quarter: 2005Q2

REPORT INFORMATION
  Report Type: 
  Country: None (occurrence: None)
  Receive Date: 20050602
  Receipt Date: 20050520
  Transmission Date: 20051028
  Serious: Yes (Hospitalization, Other)
  Sender: FDA-Public Use
  Company Number: 2005071172

PATIENT
  Age: 78 Year
  Sex: Female

DRUGS (14)
  1. XALATAN [Suspect]
     Indication: GLAUCOMA
     Dosage: 2 DROP (1 IN 1 D), OPHTHALMIC
     Route: 047
     Dates: start: 19980601
  2. ZOCOR [Suspect]
     Indication: BLOOD CHOLESTEROL INCREASED
  3. TOPROL (METOPROLOL) [Concomitant]
  4. GLUCOTROL [Concomitant]
  5. ALTACE [Concomitant]
  6. BETOPTIC [Concomitant]
  7. ALPHAGAN [Concomitant]
  8. ALL OTHER THERAPEUTIC PRODUCTS (ALL OTHER THERAPEUTIC PRODUCTS) [Concomitant]
  9. GLUCOSAMINE (GLUCOSAMINE) [Concomitant]
  10. ASPIRIN [Concomitant]
  11. VITAMINS (VITAMINS) [Concomitant]
  12. IRON (IRON) [Concomitant]
  13. GINKO BILOBA (GINKGO BILOBA) [Concomitant]
  14. VALIUM [Concomitant]

REACTIONS (15)
  - ASTHENIA [None]
  - BLOOD CHOLESTEROL INCREASED [None]
  - BLOOD GLUCOSE INCREASED [None]
  - BODY HEIGHT DECREASED [None]
  - CATARACT [None]
  - CHOKING [None]
  - CORONARY ARTERY OCCLUSION [None]
  - DIABETES MELLITUS INADEQUATE CONTROL [None]
  - DRUG DOSE OMISSION [None]
  - DRY MOUTH [None]
  - DYSPNOEA [None]
  - PHOTOPHOBIA [None]
  - RETINAL DETACHMENT [None]
  - STAPHYLOCOCCAL INFECTION [None]
  - VISUAL DISTURBANCE [None]
